FAERS Safety Report 7296255-9 (Version None)
Quarter: 2011Q1

REPORT INFORMATION
  Report Type: 
  Country: None (occurrence: None)
  Receive Date: 20110204
  Receipt Date: 20110120
  Transmission Date: 20110831
  Serious: Yes (Hospitalization)
  Sender: FDA-Public Use
  Company Number: 2011AT000037

PATIENT
  Age: 3 Year
  Sex: Male
  Weight: 5.2 kg

DRUGS (1)
  1. ALPROSTADIL [Suspect]
     Indication: PATENT DUCTUS ARTERIOSUS
     Dosage: 5-10 NG/KG/MIN

REACTIONS (3)
  - PYREXIA [None]
  - BONE DISORDER [None]
  - GENERALISED OEDEMA [None]
